FAERS Safety Report 5377553-2 (Version None)
Quarter: 2007Q3

REPORT INFORMATION
  Report Type: 
  Country: None (occurrence: None)
  Receive Date: 20070703
  Receipt Date: 20070620
  Transmission Date: 20080115
  Serious: Yes (Hospitalization)
  Sender: FDA-Public Use
  Company Number: GB-AMGEN-UK231562

PATIENT
  Age: 39 Year
  Sex: Male

DRUGS (4)
  1. FILGRASTIM [Suspect]
     Indication: CHEMOTHERAPY
     Route: 058
     Dates: start: 20070314, end: 20070510
  2. RITUXIMAB [Suspect]
     Route: 042
     Dates: start: 20070308, end: 20070324
  3. CYCLOPHOSPHAMIDE [Concomitant]
     Route: 042
     Dates: start: 20070308
  4. VINCRISTINE [Concomitant]
     Route: 042
     Dates: start: 20070308

REACTIONS (2)
  - INTERSTITIAL LUNG DISEASE [None]
  - PULMONARY FIBROSIS [None]
